FAERS Safety Report 17641053 (Version 20)
Quarter: 2022Q3

REPORT INFORMATION
  Report Type: Report from Study
  Country: GB (occurrence: GB)
  Receive Date: 20200408
  Receipt Date: 20220805
  Transmission Date: 20221027
  Serious: Yes (Death, Hospitalization)
  Sender: FDA-Public Use
  Company Number: GB-CELLTRION INC.-2020GB021090

PATIENT

DRUGS (62)
  1. TRASTUZUMAB [Suspect]
     Active Substance: TRASTUZUMAB
     Indication: Breast cancer metastatic
     Dosage: 588 MG, TIW (CUMULATIVE DOSE TO FIRST REACTION: 11256.0 MG); PER 0.33 WEEK
     Route: 042
     Dates: start: 20190118
  2. TRASTUZUMAB [Suspect]
     Active Substance: TRASTUZUMAB
     Dosage: 882 MG, TIW (DOSE MODIFIED) (INFUSION, SOLUTION) (CUMULATIVE DOSE TO FIRST REACTION: 32298.0 MG);PER
     Route: 042
     Dates: start: 20180116, end: 20180116
  3. TRASTUZUMAB [Suspect]
     Active Substance: TRASTUZUMAB
     Dosage: 588 MG, TIW (DRUG DISCONTINUED DUE TO DISEASE PROGRESSION FURTHER ANTICANCER TREATMENT); PER 0.33 WE
     Route: 042
     Dates: start: 20180503, end: 20181115
  4. LETROZOLE [Suspect]
     Active Substance: LETROZOLE
     Indication: Breast cancer metastatic
     Dosage: 2.5 MG, QD
     Route: 048
     Dates: start: 20171128
  5. CAPECITABINE [Suspect]
     Active Substance: CAPECITABINE
     Indication: Breast cancer metastatic
     Dosage: 1800 MG EVERY 0.5 DAYS (DOSE MODIFIED)
     Route: 048
     Dates: start: 20191011, end: 20191127
  6. CAPECITABINE [Suspect]
     Active Substance: CAPECITABINE
     Dosage: 2000 MG (MOST RECENT DOSE PRIOR TO AE 14/FEB/2020)
     Route: 048
     Dates: start: 20191204, end: 20200214
  7. CAPECITABINE [Suspect]
     Active Substance: CAPECITABINE
     Indication: Breast cancer metastatic
     Dosage: 1800 MG EVERY 2 WEEKS (DOSE MODIFIED)
     Route: 042
     Dates: start: 20191011, end: 20191127
  8. DENOSUMAB [Suspect]
     Active Substance: DENOSUMAB
     Indication: Product used for unknown indication
     Dosage: 120 MG (MOST RECENT DOSE PRIOR TO AE 14/FEB/2020)
     Route: 058
     Dates: start: 20180503, end: 20200214
  9. PERTUZUMAB [Suspect]
     Active Substance: PERTUZUMAB
     Indication: Breast cancer metastatic
     Dosage: 840 MG, TIW (DOSE MODIFIED); PHARMACEUTICAL DOSE FORM: 30760.0 MG
     Route: 048
     Dates: start: 20180116, end: 20180116
  10. PERTUZUMAB [Suspect]
     Active Substance: PERTUZUMAB
     Dosage: (DRUG DISCONTINUED DUE TO DISEASE PROGRESSION FURTHER ANTICANCER TREATMENT)
     Route: 042
     Dates: start: 20180503, end: 20181115
  11. PERTUZUMAB [Suspect]
     Active Substance: PERTUZUMAB
     Dosage: 420 MG EVERY 3 WEEKS (DRUG DISCONTINUED DUE TO DISEASE PROGRESSION FURTHER ANTICANCER TREATMENT)(CUM
     Route: 042
     Dates: start: 20190118, end: 20190711
  12. PERTUZUMAB [Suspect]
     Active Substance: PERTUZUMAB
     Dosage: 420 MG, TIW (DRUG DISCONTINUED DUE TO DISEASE PROGRESSION FURTHER ANTICANCER TREATMENT)
     Route: 042
     Dates: start: 20180503, end: 20181115
  13. LEVETIRACETAM [Concomitant]
     Active Substance: LEVETIRACETAM
     Indication: Seizure
     Dosage: 250 MG/250 MG (0.5/DAY)
     Route: 048
  14. LEVETIRACETAM [Concomitant]
     Active Substance: LEVETIRACETAM
     Dosage: 1500 MG EVERY 0.5 DAY
     Route: 048
  15. LEVETIRACETAM [Concomitant]
     Active Substance: LEVETIRACETAM
     Dosage: 1500 MG
     Route: 048
  16. POTASSIUM CHLORIDE [Concomitant]
     Active Substance: POTASSIUM CHLORIDE
     Indication: Hypokalaemia
     Dosage: 1 OTHER, QD
     Dates: start: 20190329, end: 20190401
  17. POTASSIUM CHLORIDE\SODIUM CHLORIDE [Concomitant]
     Active Substance: POTASSIUM CHLORIDE\SODIUM CHLORIDE
     Indication: Hypokalaemia
     Dosage: 1 OTHER
     Dates: start: 20190329, end: 20190401
  18. SODIUM CHLORIDE [Concomitant]
     Active Substance: SODIUM CHLORIDE
     Indication: Hypokalaemia
     Dosage: 1 OTHER, QD/UNK, QD (1 OTHER)
     Route: 042
     Dates: start: 20190329, end: 20190401
  19. SODIUM CHLORIDE [Concomitant]
     Active Substance: SODIUM CHLORIDE
     Dosage: UNK
  20. SODIUM CHLORIDE [Concomitant]
     Active Substance: SODIUM CHLORIDE
     Dosage: UNK, QD (1 OTHER)
     Route: 042
     Dates: start: 20190329, end: 20190401
  21. SODIUM CHLORIDE [Concomitant]
     Active Substance: SODIUM CHLORIDE
     Dosage: UNK
  22. AMOXICILLIN [Concomitant]
     Active Substance: AMOXICILLIN
     Indication: Urinary tract infection
     Dosage: 588 MG, TIW (CUMULATIVE DOSE TO FIRST REACTION: 11256.0 MG);  PER 0.33 DAY
     Route: 042
     Dates: start: 20190330, end: 20190401
  23. CLOTRIMAZOLE [Concomitant]
     Active Substance: CLOTRIMAZOLE
     Indication: Product used for unknown indication
     Dosage: 1 PERCENT, , 0.5 DAY
     Route: 061
     Dates: start: 202002
  24. VANCOMYCIN [Concomitant]
     Active Substance: VANCOMYCIN
     Indication: Product used for unknown indication
     Dosage: 125 MG(0.25 DAY); PHARMACEUTICAL DOSE FORM: 5
     Dates: start: 20200302, end: 20200316
  25. ROSUVASTATIN [Concomitant]
     Active Substance: ROSUVASTATIN
     Indication: Product used for unknown indication
     Dosage: 5 MG, QD; PHARMACEUTICAL DOSE FORM; 245
     Route: 048
     Dates: end: 2019
  26. SERTRALINE [Concomitant]
     Active Substance: SERTRALINE HYDROCHLORIDE
     Indication: Product used for unknown indication
     Dosage: 50 MG, QD; PHARMACEUTICAL DOSE FORM: 245
     Route: 048
  27. NITROFURANTOIN [Concomitant]
     Active Substance: NITROFURANTOIN
     Indication: Urinary tract infection
     Dosage: 50 MG (0.25 DAY); PHARMACEUTICAL DOSE FORM: 245
     Route: 048
     Dates: start: 20190403, end: 20190405
  28. ONDANSETRON [Concomitant]
     Active Substance: ONDANSETRON
     Indication: Product used for unknown indication
     Dosage: 4 MG, EVERY 0.33 DAYS
     Route: 048
     Dates: start: 2019
  29. ONDANSETRON [Concomitant]
     Active Substance: ONDANSETRON
     Dosage: 4 MG, EVERY 0.33 DAYS
     Route: 048
     Dates: start: 2019
  30. NYSTATIN [Concomitant]
     Active Substance: NYSTATIN
     Indication: Product used for unknown indication
     Dosage: 1 MG(EVERY 4 DAY)
     Route: 048
     Dates: start: 20200505, end: 20200511
  31. NIFEDIPINE [Concomitant]
     Active Substance: NIFEDIPINE
     Indication: Product used for unknown indication
     Dosage: 60 MG, QD; PHARMACEUTICAL DOSE FORM: 5
     Route: 048
     Dates: end: 2018
  32. ENOXAPARIN [Concomitant]
     Active Substance: ENOXAPARIN
     Indication: Product used for unknown indication
     Dosage: 80 MG, QD
     Route: 058
     Dates: start: 202002
  33. HYDROCORTISONE [Concomitant]
     Active Substance: HYDROCORTISONE
     Indication: Product used for unknown indication
     Dosage: 0.5 %; PHARMACEUTICAL DOSE FORM: 17
     Route: 061
     Dates: start: 20191025, end: 2019
  34. SIMVASTATIN [Concomitant]
     Active Substance: SIMVASTATIN
     Indication: Product used for unknown indication
     Dosage: 20 MG, QD; PHARMACEUTICAL DOSE FORM: 245
     Route: 048
     Dates: start: 2019
  35. ACETAMINOPHEN [Concomitant]
     Active Substance: ACETAMINOPHEN
     Indication: Product used for unknown indication
     Dosage: 500 MG
     Route: 048
  36. MIDAZOLAM [Concomitant]
     Active Substance: MIDAZOLAM
     Indication: Product used for unknown indication
     Dosage: 30 MG
     Route: 058
     Dates: start: 2020
  37. MIDAZOLAM [Concomitant]
     Active Substance: MIDAZOLAM
     Dosage: 10 MG
     Dates: start: 2020
  38. MIDAZOLAM [Concomitant]
     Active Substance: MIDAZOLAM
     Dosage: 2.5 MG
     Route: 058
  39. MIDAZOLAM [Concomitant]
     Active Substance: MIDAZOLAM
     Dosage: 30 MG
     Route: 058
     Dates: start: 2020
  40. PROCHLORPERAZINE [Concomitant]
     Active Substance: PROCHLORPERAZINE
     Indication: Product used for unknown indication
     Dosage: 3 MG EVERY 0.5 DAY
     Dates: start: 2020
  41. PROCHLORPERAZINE [Concomitant]
     Active Substance: PROCHLORPERAZINE
     Dosage: 6 MG, EVERY 1 DAY (3 MG (0.5 DAY)); PHARMACEUTICAL DOSE FORM: 245
     Dates: start: 2020
  42. GLYCOPYRROLATE [Concomitant]
     Active Substance: GLYCOPYRROLATE
     Indication: Product used for unknown indication
     Dosage: 400 UG
     Route: 058
     Dates: start: 20190330
  43. DEXAMETHASONE [Concomitant]
     Active Substance: DEXAMETHASONE
     Indication: Metastases to central nervous system
     Dosage: 4 MILLIGRAM, 0.25 DAY
     Route: 048
     Dates: start: 20190417, end: 20190424
  44. DEXAMETHASONE [Concomitant]
     Active Substance: DEXAMETHASONE
     Dosage: 8 MILLIGRAM, (0.5/ DAY)
     Route: 048
     Dates: start: 201812
  45. DEXAMETHASONE [Concomitant]
     Active Substance: DEXAMETHASONE
     Dosage: 8 MILLIGRAM, 0.5 DAY
     Route: 048
     Dates: start: 202005
  46. DEXAMETHASONE [Concomitant]
     Active Substance: DEXAMETHASONE
     Dosage: 2 MILLIGRAM, QD (CUMULATIVE DOSE: 610.0833MG)
     Route: 048
     Dates: start: 20190425, end: 2019
  47. DEXAMETHASONE [Concomitant]
     Active Substance: DEXAMETHASONE
     Dosage: 4 MILLIGRAM, 0.5 DAY
     Route: 048
     Dates: start: 20190110, end: 2019
  48. DEXAMETHASONE [Concomitant]
     Active Substance: DEXAMETHASONE
     Dosage: 6 MILLIGRAM, 0.5 DAY
     Route: 048
     Dates: start: 20190109
  49. DEXAMETHASONE [Concomitant]
     Active Substance: DEXAMETHASONE
     Dosage: 8 MILLIGRAM, 0.5 DAY/8 MG(0.5DAY)
     Route: 048
     Dates: start: 202005
  50. COCODAMOL [Concomitant]
     Active Substance: ACETAMINOPHEN\CODEINE PHOSPHATE
     Indication: Product used for unknown indication
     Dosage: 30 MG (AS NECESSARY); PHARMACEUTICAL DOSE FORM: 245
     Route: 048
     Dates: end: 20200512
  51. MORPHINE SULFATE [Concomitant]
     Active Substance: MORPHINE SULFATE
     Indication: Product used for unknown indication
     Dosage: 2.5 MG
     Route: 058
     Dates: start: 20190330
  52. METRONIDAZOLE [Concomitant]
     Active Substance: METRONIDAZOLE
     Indication: Diarrhoea
     Dosage: UNK; PHARMACEUTICAL DOSE FORM: 245
  53. METRONIDAZOLE [Concomitant]
     Active Substance: METRONIDAZOLE
     Dosage: 400 MG(0.33 DAY); PHARMACEUTICAL DOSE FORM: 245
     Route: 048
     Dates: start: 20190401, end: 20190403
  54. LANSOPRAZOLE [Concomitant]
     Active Substance: LANSOPRAZOLE
     Indication: Metastases to central nervous system
     Dosage: 30 MILLIGRAM, QD (PHARMACEUTICAL DOSE FORM: 5)
     Route: 048
     Dates: start: 201812
  55. CEPHALEXIN [Concomitant]
     Active Substance: CEPHALEXIN
     Indication: Urinary tract infection
     Dosage: UNK
     Route: 048
     Dates: start: 20190208, end: 2019
  56. SODIUM CHLORIDE [Concomitant]
     Active Substance: SODIUM CHLORIDE
     Indication: Product used for unknown indication
     Dosage: UNK
  57. CYCLIZINE [Concomitant]
     Active Substance: CYCLIZINE
     Indication: Product used for unknown indication
     Dosage: 50 MG (0.33 DAY)
     Route: 048
     Dates: start: 2019, end: 20190403
  58. FOLIC ACID [Concomitant]
     Active Substance: FOLIC ACID
     Indication: Product used for unknown indication
     Dosage: 5 MG, QD
     Route: 048
     Dates: start: 20160211
  59. METFORMIN [Concomitant]
     Active Substance: METFORMIN HYDROCHLORIDE
     Indication: Product used for unknown indication
     Dosage: 500 MG, QD; PHARMACEUTICAL DOSE FORM; 245
     Route: 048
     Dates: start: 2018, end: 2018
  60. LACOSAMIDE [Concomitant]
     Active Substance: LACOSAMIDE
     Indication: Product used for unknown indication
     Dosage: 50 MG(0.5 DAY); PHARMACEUTICAL DOSE FORM: 245
     Route: 048
     Dates: start: 20200512, end: 20200519
  61. LACOSAMIDE [Concomitant]
     Active Substance: LACOSAMIDE
     Dosage: 100 MG(0.5 DAY); PHARMACEUTICAL DOSE FORM: 245
     Route: 048
     Dates: start: 20200519
  62. ASPIRIN [Concomitant]
     Active Substance: ASPIRIN
     Indication: Product used for unknown indication
     Dosage: 75 MG, QD
     Route: 048
     Dates: start: 2019, end: 2019

REACTIONS (3)
  - Disease progression [Fatal]
  - Dyspnoea [Fatal]
  - Off label use [Fatal]

NARRATIVE: CASE EVENT DATE: 20200224
